FAERS Safety Report 11559841 (Version 1)
Quarter: 2015Q3

REPORT INFORMATION
  Report Type: Spontaneous
  Country: US (occurrence: US)
  Receive Date: 20150916
  Receipt Date: 20150916
  Transmission Date: 20151125
  Serious: No
  Sender: FDA-Public Use
  Company Number: US-ELI_LILLY_AND_COMPANY-US200809000183

PATIENT
  Sex: Female

DRUGS (1)
  1. FORTEO [Suspect]
     Active Substance: TERIPARATIDE
     Dosage: UNK, UNK
     Dates: start: 20080629

REACTIONS (7)
  - Dry eye [Recovered/Resolved]
  - Corneal abrasion [Recovered/Resolved]
  - Superficial injury of eye [Recovered/Resolved]
  - Joint arthroplasty [Recovered/Resolved]
  - Carpal tunnel decompression [Recovered/Resolved]
  - Tendon operation [Not Recovered/Not Resolved]
  - Injection site bruising [Not Recovered/Not Resolved]

NARRATIVE: CASE EVENT DATE: 20080701
